FAERS Safety Report 7006419-7 (Version None)
Quarter: 2010Q3

REPORT INFORMATION
  Report Type: 
  Country: None (occurrence: None)
  Receive Date: 20100921
  Receipt Date: 20100913
  Transmission Date: 20110219
  Serious: Yes (Other)
  Sender: FDA-Public Use
  Company Number: BR-AMGEN-QUU438521

PATIENT
  Age: 60 Year
  Sex: Female
  Weight: 75 kg

DRUGS (6)
  1. ENBREL [Suspect]
     Indication: RHEUMATOID ARTHRITIS
     Route: 058
     Dates: start: 20100205, end: 20100401
  2. FOLIC ACID [Concomitant]
     Dosage: 9.5 MG UNSPECIFIED FREQUENCY
  3. FAMOTIDINE [Concomitant]
     Dosage: 20 MG UNSPECIFIED FREQUENCY
  4. PIROXICAM [Concomitant]
     Dosage: 5 MG UNSPECIFIED FREQUENCY
  5. CAPTOPRIL [Concomitant]
     Dosage: UNSPECIFIED
  6. CHLOROQUINE PHOSPHATE [Concomitant]
     Dosage: 80 MG UNSPECIFIED FREQUENCY

REACTIONS (1)
  - KNEE OPERATION [None]
